FAERS Safety Report 5956054-4 (Version None)
Quarter: 2008Q4

REPORT INFORMATION
  Report Type: 
  Country: None (occurrence: None)
  Receive Date: 20081118
  Receipt Date: 20081112
  Transmission Date: 20090506
  Serious: Yes (Hospitalization)
  Sender: FDA-Public Use
  Company Number: SI-SP-2008-03602

PATIENT
  Age: 72 Year
  Sex: Female

DRUGS (1)
  1. IMMUCYST [Suspect]
     Indication: BLADDER CANCER
     Route: 043

REACTIONS (11)
  - ARTHRALGIA [None]
  - ARTHRITIS REACTIVE [None]
  - BODY TEMPERATURE INCREASED [None]
  - CHILLS [None]
  - CONJUNCTIVITIS [None]
  - DYSURIA [None]
  - EYE PAIN [None]
  - FATIGUE [None]
  - MUSCULOSKELETAL PAIN [None]
  - OEDEMA PERIPHERAL [None]
  - REITER'S SYNDROME [None]
